FAERS Safety Report 4660623-1 (Version None)
Quarter: 2005Q2

REPORT INFORMATION
  Report Type: 
  Country: None (occurrence: None)
  Receive Date: 20050425
  Receipt Date: 20041216
  Transmission Date: 20051028
  Serious: No
  Sender: FDA-Public Use
  Company Number: US103560

PATIENT
  Age: 85 Year
  Sex: Female
  Weight: 49 kg

DRUGS (10)
  1. SENSIPAR [Suspect]
     Indication: HYPERPARATHYROIDISM PRIMARY
     Dosage: 30 MG, 1 IN 1 DAYS,PO
     Route: 048
     Dates: start: 20040913
  2. POTASSIUM CHLORIDE [Concomitant]
  3. FUROSEMIDE [Concomitant]
  4. ALENDRONATE SODIUM [Concomitant]
  5. VALSARTAN [Concomitant]
  6. AMIODARONE HYDROCHLORIDE [Concomitant]
  7. METOLAZONE [Concomitant]
  8. NITROGLYCERIN [Concomitant]
  9. OXYGEN [Concomitant]
  10. WARFARIN SODIUM [Concomitant]

REACTIONS (1)
  - PROTHROMBIN TIME PROLONGED [None]
